FAERS Safety Report 19536148 (Version 1)
Quarter: 2021Q3

REPORT INFORMATION
  Report Type: Report from Study
  Country: None (occurrence: US)
  Receive Date: 20210713
  Receipt Date: 20210713
  Transmission Date: 20211014
  Serious: Yes (Hospitalization)
  Sender: FDA-Public Use
  Company Number: US-ABBVIE-21K-163-3981950-00

PATIENT
  Age: 77 Year
  Sex: Male

DRUGS (1)
  1. SKYRIZI [Suspect]
     Active Substance: RISANKIZUMAB-RZAA
     Indication: PSORIASIS
     Route: 058
     Dates: start: 20210412

REACTIONS (4)
  - Fluid retention [Recovered/Resolved]
  - Swelling [Recovered/Resolved]
  - Cardiac discomfort [Recovered/Resolved]
  - Skin plaque [Unknown]

NARRATIVE: CASE EVENT DATE: 2021
